FAERS Safety Report 8239768-5 (Version None)
Quarter: 2012Q1

REPORT INFORMATION
  Report Type: 
  Country: None (occurrence: None)
  Receive Date: 20120309
  Receipt Date: 20110216
  Transmission Date: 20120608
  Serious: Yes (Other)
  Sender: FDA-Public Use
  Company Number: PHHY2010US53853

PATIENT
  Age: 55 Year
  Sex: Female

DRUGS (6)
  1. ESTRADIOL [Concomitant]
  2. TRAMADOL HCL [Concomitant]
  3. ZOLOFT [Concomitant]
  4. WELLBUTRIN [Concomitant]
  5. EXTAVIA [Suspect]
     Indication: MULTIPLE SCLEROSIS
     Dosage: 0.25 MG (1 ML), QOD, SUBCUTANEOUS
     Route: 058
     Dates: start: 20100623
  6. BACLOFEN [Concomitant]

REACTIONS (16)
  - SOMNOLENCE [None]
  - MUSCLE TIGHTNESS [None]
  - LIMB DISCOMFORT [None]
  - SOMNAMBULISM [None]
  - NAUSEA [None]
  - MIGRAINE [None]
  - MUSCLE SPASMS [None]
  - FEELING ABNORMAL [None]
  - PAIN IN EXTREMITY [None]
  - PARAESTHESIA [None]
  - FATIGUE [None]
  - DYSPHONIA [None]
  - HYPOAESTHESIA [None]
  - FEELING HOT [None]
  - HYPERHIDROSIS [None]
  - INCONTINENCE [None]
